FAERS Safety Report 9817921 (Version 1)
Quarter: 2014Q1

REPORT INFORMATION
  Report Type: Spontaneous
  Country: US (occurrence: None)
  Receive Date: 20140110
  Receipt Date: 20140110
  Transmission Date: 20141002
  Serious: Yes (Other)
  Sender: FDA-Public Use
  Company Number: None

PATIENT
  Age: 68 Year
  Sex: Male

DRUGS (1)
  1. EUFLEXXA [Suspect]
     Indication: OSTEOARTHRITIS
     Dosage: 20 MG ONCE WEEK FOR 3 WEEKS IN BOTH IA
     Dates: start: 20130220, end: 20130220

REACTIONS (2)
  - Skin exfoliation [None]
  - Dry skin [None]
